FAERS Safety Report 4729340-3 (Version None)
Quarter: 2005Q3

REPORT INFORMATION
  Report Type: 
  Country: None (occurrence: None)
  Receive Date: 20050729
  Receipt Date: 20050713
  Transmission Date: 20060218
  Serious: Yes (Life-Threatening, Other)
  Sender: FDA-Public Use
  Company Number: PHBS2005JP10022

PATIENT
  Age: 17 Year
  Sex: Female

DRUGS (8)
  1. TOFRANIL [Suspect]
     Indication: PANIC DISORDER
     Dosage: 2100 MG, ONCE/SINGLE
     Route: 048
     Dates: start: 20041110, end: 20041110
  2. BENZALIN [Concomitant]
     Dosage: 140 MG, ONCE/SINGLE
     Route: 048
     Dates: start: 20041110, end: 20041110
  3. PAXIL [Concomitant]
     Dosage: 280 MG, ONCE/SINGLE
     Route: 048
     Dates: start: 20041110, end: 20041110
  4. CONTOMIN [Concomitant]
     Dosage: 375 MG, ONCE/SINGLE
     Route: 048
     Dates: start: 20041110, end: 20041110
  5. MEILAX [Concomitant]
     Dosage: 56 MG, ONCE/SINGLE
     Route: 048
     Dates: start: 20041110, end: 20041110
  6. VITAMIN A [Concomitant]
     Dosage: 42 DF, ONCE/SINGLE
     Route: 048
     Dates: start: 20041110, end: 20041110
  7. DEPAS [Concomitant]
     Dosage: 74 MG, ONCE/SINGLE
     Route: 048
     Dates: start: 20041110, end: 20041110
  8. ROHYPNOL [Concomitant]
     Dosage: 166 MG, ONCE/SINGLE
     Route: 048
     Dates: start: 20041110, end: 20041110

REACTIONS (5)
  - CARDIOVERSION [None]
  - COMA [None]
  - SHOCK [None]
  - THERAPEUTIC AGENT TOXICITY [None]
  - VENTRICULAR TACHYCARDIA [None]
